FAERS Safety Report 8557768 (Version 4)
Quarter: 2012Q4

REPORT INFORMATION
  Report Type: Report from Study
  Country: GB (occurrence: GB)
  Receive Date: 20120511
  Receipt Date: 20121029
  Transmission Date: 20130627
  Serious: Yes (Hospitalization)
  Sender: FDA-Public Use
  Company Number: GB-PFIZER INC-2012106433

PATIENT
  Age: 54 Year
  Sex: Male

DRUGS (5)
  1. SUNITINIB MALATE [Suspect]
     Indication: UROTHELIAL CARCINOMA
     Dosage: 25 mg (frequency unspecified)
     Dates: start: 20120403
  2. CISPLATIN [Suspect]
     Indication: UROTHELIAL CARCINOMA
     Dosage: 140 mg, cyclic
     Route: 042
     Dates: start: 20120424
  3. GEMCITABINE [Suspect]
     Indication: UROTHELIAL CARCINOMA
     Dosage: 2000 mg, cyclic
     Route: 042
     Dates: start: 20120424
  4. ZOMORPH [Concomitant]
     Dosage: 60 mg, 2x/day
     Route: 048
     Dates: start: 20120403
  5. LANSOPRAZOLE [Concomitant]
     Dosage: 30 mg, 1x/day
     Route: 048
     Dates: start: 20120417

REACTIONS (1)
  - Lower respiratory tract infection [Recovered/Resolved]
